FAERS Safety Report 4305447-X (Version None)
Quarter: 2004Q1

REPORT INFORMATION
  Report Type: 
  Country: None (occurrence: None)
  Receive Date: 20040226
  Receipt Date: 20031222
  Transmission Date: 20041129
  Serious: Yes (Other)
  Sender: FDA-Public Use
  Company Number: US-BRISTOL-MYERS SQUIBB COMPANY-12464459

PATIENT
  Age: 64 Year
  Sex: Male
  Weight: 70 kg

DRUGS (5)
  1. CISPLATIN [Suspect]
     Indication: ADENOCARCINOMA
     Route: 042
     Dates: start: 20031212, end: 20031212
  2. TAXOL [Suspect]
     Indication: ADENOCARCINOMA
     Dates: start: 20031120, end: 20031120
  3. MORPHINE [Concomitant]
  4. ZOFRAN [Concomitant]
     Indication: NAUSEA
  5. SHARK CARTILAGE [Concomitant]

REACTIONS (3)
  - DEAFNESS [None]
  - DRUG INEFFECTIVE [None]
  - TINNITUS [None]
